FAERS Safety Report 7491606-4 (Version None)
Quarter: 2011Q2

REPORT INFORMATION
  Report Type: 
  Country: None (occurrence: None)
  Receive Date: 20110519
  Receipt Date: 20110513
  Transmission Date: 20111010
  Serious: Yes (Death, Life-Threatening)
  Sender: FDA-Public Use
  Company Number: GB-PFIZER INC-2011104061

PATIENT
  Age: 82 Year
  Sex: Male
  Weight: 63 kg

DRUGS (9)
  1. SUSTANON [Concomitant]
     Indication: HYPOGONADISM MALE
  2. SUSTANON [Concomitant]
     Indication: LUTEINISING HORMONE DEFICIENCY
     Dosage: 250 MG, EVERY 3 WEEKS
     Dates: start: 19830715
  3. SUSTANON [Concomitant]
     Indication: BLOOD FOLLICLE STIMULATING HORMONE DECREASED
  4. HYDROCORTISONE [Concomitant]
     Indication: BLOOD CORTICOTROPHIN ABNORMAL
     Dosage: 10 MG, 2X/DAY
     Dates: start: 19830715
  5. RANITIDINE [Concomitant]
     Indication: GASTRIC DISORDER
     Dosage: 150 MG, DAILY
     Dates: start: 20000316
  6. SOMATROPIN [Suspect]
     Indication: GROWTH HORMONE DEFICIENCY
     Dosage: 0.2 MG/DAY, 7INJECTIONS/WEEK
     Dates: start: 20030304
  7. LEVOTHYROXINE SODIUM [Concomitant]
     Indication: HYPOTHYROIDISM
     Dosage: 50 MG, DAILY
     Dates: start: 20070425
  8. HYDROCORTISONE [Concomitant]
     Dosage: 15 MG, UNK
     Dates: start: 20020614
  9. HYDROCORTISONE [Concomitant]
     Dosage: 20 MG, UNK
     Dates: start: 20020926

REACTIONS (1)
  - DEATH [None]
